FAERS Safety Report 6933872-7 (Version None)
Quarter: 2010Q3

REPORT INFORMATION
  Report Type: 
  Country: None (occurrence: None)
  Receive Date: 20100820
  Receipt Date: 20100817
  Transmission Date: 20110219
  Serious: Yes (Hospitalization)
  Sender: FDA-Public Use
  Company Number: US-GILEAD-2010-0031102

PATIENT
  Sex: Male
  Weight: 68.6 kg

DRUGS (11)
  1. LETAIRIS [Suspect]
     Indication: PULMONARY ARTERIAL HYPERTENSION
     Route: 048
  2. REVATIO [Concomitant]
  3. REMODULIN [Concomitant]
  4. NORVASC [Concomitant]
  5. PREDNISONE [Concomitant]
  6. LANTUS [Concomitant]
  7. PROGRAF [Concomitant]
  8. GABAPENTIN [Concomitant]
  9. NORTRIPTYLINE HYDROCHLORIDE [Concomitant]
  10. TEMAZEPAM [Concomitant]
  11. PREVACID [Concomitant]

REACTIONS (1)
  - PNEUMONIA [None]
